FAERS Safety Report 6130896-7 (Version None)
Quarter: 2009Q1

REPORT INFORMATION
  Report Type: 
  Country: None (occurrence: None)
  Receive Date: 20090325
  Receipt Date: 20090323
  Transmission Date: 20090719
  Serious: Yes (Other)
  Sender: FDA-Public Use
  Company Number: US-RB-012399-09

PATIENT
  Age: 48 Year
  Sex: Male

DRUGS (8)
  1. SUBOXONE [Suspect]
     Indication: PAIN
     Route: 060
     Dates: start: 20090101
  2. DEPAKOTE [Concomitant]
     Indication: ANXIETY
     Dosage: DOSE UNKNOWN
     Route: 048
  3. ANTI HYPERTENSIVE [Concomitant]
     Indication: HYPERTENSION
     Dosage: SPECIFIC DRUG AND DOSING INFORMATION UNKNOWN
  4. AGGRENOX [Concomitant]
     Indication: HYPERTENSION
     Dosage: DOSE UNKNOWN
     Route: 048
  5. AGGRENOX [Concomitant]
     Indication: PROPHYLAXIS
     Dosage: DOSE UNKNOWN
     Route: 048
  6. AMITIZA [Concomitant]
     Indication: CONSTIPATION
     Dosage: DOSE UNKNOWN
     Route: 048
  7. SEROQUEL [Suspect]
     Indication: ANXIETY
     Dosage: DOSE UNKNOWN
     Route: 048
  8. EFFEXOR [Suspect]
     Indication: DEPRESSION
     Dosage: DOSE UNKNOWN
     Route: 048

REACTIONS (2)
  - HALLUCINATION [None]
  - VOMITING [None]
